FAERS Safety Report 7178390-9 (Version None)
Quarter: 2010Q4

REPORT INFORMATION
  Report Type: 
  Country: None (occurrence: None)
  Receive Date: 20101220
  Receipt Date: 20101207
  Transmission Date: 20110411
  Serious: Yes (Hospitalization)
  Sender: FDA-Public Use
  Company Number: TR-WATSON-2010-15964

PATIENT
  Age: 27 Year
  Sex: Male

DRUGS (3)
  1. MONODOX [Suspect]
     Indication: BRUCELLOSIS
     Dosage: 100 MG, BID
     Route: 048
  2. SULFAMETHOXAZOLE/TRIMETHOPRIM 800/160 (WATSON LABORATORIES) [Suspect]
     Indication: BRUCELLOSIS
  3. RIFAMPICIN [Suspect]
     Indication: BRUCELLOSIS
     Dosage: 600 MG, DAILY
     Route: 048

REACTIONS (3)
  - CANDIDIASIS [None]
  - ENDOCARDITIS BACTERIAL [None]
  - ENDOCARDITIS CANDIDA [None]
